FAERS Safety Report 14720045 (Version 1)
Quarter: 2018Q2

REPORT INFORMATION
  Report Type: Spontaneous
  Country: FR (occurrence: FR)
  Receive Date: 20180405
  Receipt Date: 20180405
  Transmission Date: 20180711
  Serious: Yes (Other)
  Sender: FDA-Public Use
  Company Number: FR-BAYER-2018-061957

PATIENT
  Age: 73 Year
  Sex: Female

DRUGS (3)
  1. STIVARGA [Suspect]
     Active Substance: REGORAFENIB
     Indication: COLORECTAL CANCER METASTATIC
     Dosage: UNK, ALTERNATING 80 MG/DAY AND 120 MG/DAY
     Dates: start: 20161206
  2. STIVARGA [Suspect]
     Active Substance: REGORAFENIB
     Indication: COLORECTAL CANCER METASTATIC
     Dosage: 120 MG DAILY
     Dates: start: 20161212
  3. STIVARGA [Suspect]
     Active Substance: REGORAFENIB
     Indication: COLORECTAL CANCER METASTATIC
     Dosage: 80 MG, DAILY
     Dates: start: 20161108

REACTIONS (6)
  - Mucous membrane disorder [None]
  - Thyroid disorder [None]
  - Metastases to adrenals [None]
  - Skin reaction [None]
  - Metastases to liver [None]
  - Metastases to lymph nodes [None]

NARRATIVE: CASE EVENT DATE: 20170130
